FAERS Safety Report 5869296-3 (Version None)
Quarter: 2008Q3

REPORT INFORMATION
  Report Type: 
  Country: None (occurrence: None)
  Receive Date: 20080828
  Receipt Date: 20080813
  Transmission Date: 20090109
  Serious: Yes (Hospitalization, Other)
  Sender: FDA-Public Use
  Company Number: WAES 0707GBR00062

PATIENT
  Age: 7 Year
  Sex: Male

DRUGS (3)
  1. INDOMETHACIN [Suspect]
     Dosage: 25 MG/BID
  2. IBUPROFEN [Suspect]
     Dosage: 10 MG/KG/Q8H
  3. DICLOFENAC SODIUM [Suspect]
     Dosage: RECT
     Route: 054

REACTIONS (5)
  - BLOOD CREATININE INCREASED [None]
  - BLOOD UREA INCREASED [None]
  - DEHYDRATION [None]
  - PROCEDURAL VOMITING [None]
  - RENAL FAILURE ACUTE [None]
